FAERS Safety Report 14159553 (Version 1)
Quarter: 2017Q4

REPORT INFORMATION
  Report Type: Spontaneous
  Country: US (occurrence: US)
  Receive Date: 20171106
  Receipt Date: 20171106
  Transmission Date: 20180321
  Serious: No
  Sender: FDA-Public Use
  Company Number: US-PFIZER INC-2017473271

PATIENT
  Age: 46 Year
  Sex: Female

DRUGS (3)
  1. LYRICA [Suspect]
     Active Substance: PREGABALIN
     Dosage: UNK
     Route: 048
     Dates: start: 20171025
  2. LYRICA [Suspect]
     Active Substance: PREGABALIN
     Indication: NERVE INJURY
     Dosage: 200 MG, DAILY
     Route: 048
     Dates: end: 20171024
  3. AMBIEN [Suspect]
     Active Substance: ZOLPIDEM TARTRATE

REACTIONS (8)
  - Dizziness [Recovered/Resolved]
  - Intentional product misuse [Not Recovered/Not Resolved]
  - Breakthrough pain [Not Recovered/Not Resolved]
  - Insomnia [Unknown]
  - Skin discolouration [Unknown]
  - Abdominal discomfort [Unknown]
  - Vision blurred [Recovered/Resolved]
  - Weight increased [Unknown]

NARRATIVE: CASE EVENT DATE: 20171025
